FAERS Safety Report 6294321-8 (Version None)
Quarter: 2009Q3

REPORT INFORMATION
  Report Type: 
  Country: None (occurrence: None)
  Receive Date: 20090803
  Receipt Date: 20090720
  Transmission Date: 20100115
  Serious: Yes (Disabling)
  Sender: FDA-Public Use
  Company Number: AU-PFIZER INC-2009235627

PATIENT
  Age: 51 Year

DRUGS (2)
  1. XALATAN [Suspect]
     Indication: GLAUCOMA
     Dosage: 1 GTT, 1X/DAY
     Dates: start: 20070101
  2. COMBIPATCH [Concomitant]
     Indication: HORMONE REPLACEMENT THERAPY
     Dosage: 1 PATCH, TWICE WEEKLY
     Route: 062

REACTIONS (2)
  - HYPERSENSITIVITY [None]
  - RHINITIS ALLERGIC [None]
